FAERS Safety Report 8390266 (Version 2)
Quarter: 2012Q4

REPORT INFORMATION
  Report Type: 
  Country: JP (occurrence: JP)
  Receive Date: 20120203
  Receipt Date: 20121024
  Transmission Date: 20130627
  Serious: Yes (Other)
  Sender: FDA-Public Use
  Company Number: PHHY2012JP008372

PATIENT
  Age: 24 Year
  Sex: Female

DRUGS (6)
  1. NATEGLINIDE [Suspect]
     Indication: GLUCOSE TOLERANCE IMPAIRED
     Dosage: 90 mg, TID
     Route: 048
     Dates: start: 201010, end: 20110512
  2. RIVOTRIL [Concomitant]
     Indication: EPILEPSY
     Dosage: 0.5 mg, UNK
     Dates: end: 20110512
  3. TOPIRAMATE [Concomitant]
     Dosage: 300 mg,
     Dates: start: 201101
  4. DEPAKENE-R [Concomitant]
     Dosage: 400 mg,
     Dates: start: 199509
  5. FOLIAMIN [Concomitant]
  6. INSULIN [Concomitant]

REACTIONS (3)
  - Abnormal labour [Unknown]
  - Polyhydramnios [Unknown]
  - Maternal exposure during pregnancy [Unknown]
